FAERS Safety Report 8287199-4 (Version None)
Quarter: 2012Q2

REPORT INFORMATION
  Report Type: 
  Country: None (occurrence: None)
  Receive Date: 20120416
  Receipt Date: 20120412
  Transmission Date: 20120825
  Serious: Yes (Life-Threatening, Hospitalization)
  Sender: FDA-Public Use
  Company Number: ES-ASTRAZENECA-2012SE20730

PATIENT
  Age: 21334 Day
  Sex: Male

DRUGS (8)
  1. STUDY PROCEDURE [Suspect]
     Route: 065
  2. IVABRADINE [Suspect]
  3. NITROGLYCERIN [Suspect]
  4. ENOXAPARIN SODIUM [Suspect]
  5. ROSUVASTATIN CALCIUM [Suspect]
  6. AZD6140 [Suspect]
     Indication: ACUTE MYOCARDIAL INFARCTION
     Dosage: 180 MG LOADING DOSE, 90 MG TWICE DAILY DURING 30 DAYS.
     Route: 048
     Dates: start: 20120226, end: 20120301
  7. ASPIRIN [Suspect]
     Indication: ANGINA PECTORIS
     Route: 048
  8. NIFEDIPINE [Suspect]

REACTIONS (1)
  - CHOLECYSTITIS ACUTE [None]
